FAERS Safety Report 19745899 (Version 4)
Quarter: 2021Q3

REPORT INFORMATION
  Report Type: Report from Study
  Country: GB (occurrence: GB)
  Receive Date: 20210825
  Receipt Date: 20210929
  Transmission Date: 20211014
  Serious: Yes (Hospitalization)
  Sender: FDA-Public Use
  Company Number: NVSC2021GB156075

PATIENT
  Age: 80 Year
  Sex: Male
  Weight: 65 kg

DRUGS (15)
  1. INCLISIRAN. [Suspect]
     Active Substance: INCLISIRAN
     Indication: ARTERIOSCLEROSIS
     Dosage: UNK
     Route: 058
     Dates: start: 20190705
  2. KJX839 (INCLISIRAN) [Suspect]
     Active Substance: INCLISIRAN
     Dosage: UNK
     Route: 058
     Dates: start: 20210310, end: 20210310
  3. ASPIRIN. [Concomitant]
     Active Substance: ASPIRIN
     Indication: PROPHYLAXIS
     Dosage: 75 MG, QD
     Route: 048
  4. ATORVASTATIN [Concomitant]
     Active Substance: ATORVASTATIN
     Indication: HYPERLIPIDAEMIA
     Dosage: 40 MG, QD
     Route: 048
  5. RAMIPRIL. [Suspect]
     Active Substance: RAMIPRIL
     Indication: PROPHYLAXIS
  6. KJX839 (INCLISIRAN) [Suspect]
     Active Substance: INCLISIRAN
     Dosage: UNK
     Route: 058
     Dates: start: 20200902, end: 20200902
  7. ATENOLOL. [Concomitant]
     Active Substance: ATENOLOL
     Indication: HYPERTENSION
     Dosage: 25 MG, QD
     Route: 048
  8. ATENOLOL. [Concomitant]
     Active Substance: ATENOLOL
     Indication: PROPHYLAXIS
  9. KJX839 (INCLISIRAN) [Suspect]
     Active Substance: INCLISIRAN
     Indication: ARTERIOSCLEROSIS
     Dosage: UNK
     Route: 058
     Dates: start: 20191009, end: 20191009
  10. RAMIPRIL. [Suspect]
     Active Substance: RAMIPRIL
     Indication: HYPERTENSION
     Dosage: 10 MG, QD
     Route: 048
     Dates: end: 20210630
  11. RANITIDINE. [Concomitant]
     Active Substance: RANITIDINE
     Indication: PRODUCT USED FOR UNKNOWN INDICATION
     Dosage: UNK
     Route: 065
     Dates: start: 20180808, end: 20200821
  12. OMEPRAZOLE. [Suspect]
     Active Substance: OMEPRAZOLE
     Indication: PRODUCT USED FOR UNKNOWN INDICATION
     Dosage: 20 MG, QD
     Route: 065
     Dates: start: 20200825, end: 20210821
  13. KJX839 (INCLISIRAN) [Suspect]
     Active Substance: INCLISIRAN
     Dosage: UNK
     Route: 058
     Dates: start: 20200311, end: 20200311
  14. ATORVASTATIN [Concomitant]
     Active Substance: ATORVASTATIN
     Indication: PROPHYLAXIS
  15. AMLODIPINE [Concomitant]
     Active Substance: AMLODIPINE BESYLATE
     Indication: HYPERTENSION
     Dosage: 5 MG, QD
     Route: 048

REACTIONS (1)
  - Acute kidney injury [Recovering/Resolving]

NARRATIVE: CASE EVENT DATE: 20210630
